FAERS Safety Report 13752589 (Version 1)
Quarter: 2017Q3

REPORT INFORMATION
  Report Type: Spontaneous
  Country: US (occurrence: US)
  Receive Date: 20170713
  Receipt Date: 20170713
  Transmission Date: 20171127
  Serious: Yes (Hospitalization)
  Sender: FDA-Public Use
  Company Number: None

PATIENT
  Age: 52 Year
  Sex: Male

DRUGS (10)
  1. PREDNISONE. [Concomitant]
     Active Substance: PREDNISONE
  2. PANTOPRAZOLE [Concomitant]
     Active Substance: PANTOPRAZOLE
  3. MG-PLUS [Concomitant]
  4. GABAPENTIN. [Concomitant]
     Active Substance: GABAPENTIN
  5. SPRYCEL [Suspect]
     Active Substance: DASATINIB
     Indication: LEUKAEMIA
     Route: 048
     Dates: start: 20160604
  6. TACROLIMUS. [Concomitant]
     Active Substance: TACROLIMUS
  7. POT CL MICRO TAB [Concomitant]
  8. PENICILLIN VK [Concomitant]
     Active Substance: PENICILLIN V POTASSIUM
  9. ATOVAQUONE SUS 750/5ML [Concomitant]
     Active Substance: ATOVAQUONE
  10. ACYCLOVIR. [Concomitant]
     Active Substance: ACYCLOVIR

REACTIONS (3)
  - Therapy cessation [None]
  - Pneumonia [None]
  - Heart rate increased [None]

NARRATIVE: CASE EVENT DATE: 201706
